FAERS Safety Report 23904522 (Version 4)
Quarter: 2024Q3

REPORT INFORMATION
  Report Type: Report from Study
  Country: GB (occurrence: GB)
  Receive Date: 20240527
  Receipt Date: 20240819
  Transmission Date: 20241017
  Serious: Yes (Other)
  Sender: NOVARTIS
  Company Number: GB-002147023-NVSC2024GB103123

PATIENT
  Sex: Female

DRUGS (4)
  1. COSENTYX [Suspect]
     Active Substance: SECUKINUMAB
     Indication: Ankylosing spondylitis
     Dosage: 150 MG (WEEK 0)
     Route: 058
     Dates: start: 20240507
  2. COSENTYX [Suspect]
     Active Substance: SECUKINUMAB
     Dosage: 150 MG (WEEK 1)
     Route: 058
  3. COSENTYX [Suspect]
     Active Substance: SECUKINUMAB
     Dosage: 150 MG (WEEK 2)
     Route: 058
  4. COSENTYX [Suspect]
     Active Substance: SECUKINUMAB
     Dosage: 150 MG (WEEK 3)
     Route: 058

REACTIONS (8)
  - Sialoadenitis [Unknown]
  - Malaise [Unknown]
  - Asthenia [Unknown]
  - Heart rate irregular [Unknown]
  - Eye disorder [Unknown]
  - Oral infection [Unknown]
  - Fatigue [Recovered/Resolved]
  - Back pain [Recovering/Resolving]
